FAERS Safety Report 13118702 (Version 1)
Quarter: 2017Q1

REPORT INFORMATION
  Report Type: Spontaneous
  Country: BR (occurrence: BR)
  Receive Date: 20170116
  Receipt Date: 20170116
  Transmission Date: 20170428
  Serious: Yes (Life-Threatening, Other)
  Sender: FDA-Public Use
  Company Number: BR-JNJFOC-20161124863

PATIENT
  Sex: Female

DRUGS (5)
  1. XARELTO [Suspect]
     Active Substance: RIVAROXABAN
     Indication: EMBOLISM
     Route: 048
     Dates: start: 2002, end: 2002
  2. XARELTO [Suspect]
     Active Substance: RIVAROXABAN
     Indication: EMBOLISM
     Route: 048
     Dates: start: 20160110, end: 201609
  3. BICONCOR [Concomitant]
     Active Substance: BISOPROLOL FUMARATE\HYDROCHLOROTHIAZIDE
     Indication: ARRHYTHMIA
     Route: 048
  4. WARFARIN [Concomitant]
     Active Substance: WARFARIN
     Indication: EMBOLISM
     Route: 065
     Dates: start: 201609
  5. WARFARIN [Concomitant]
     Active Substance: WARFARIN
     Indication: EMBOLISM
     Route: 065
     Dates: start: 200001, end: 201512

REACTIONS (12)
  - Psychomotor hyperactivity [Recovered/Resolved]
  - Oedema [Unknown]
  - Urinary tract infection [Recovered/Resolved]
  - Abdominal distension [Recovered/Resolved]
  - Therapeutic response unexpected [Unknown]
  - Increased tendency to bruise [Recovered/Resolved]
  - Renal pain [Recovered/Resolved]
  - Arthralgia [Recovered/Resolved]
  - Haemorrhagic diathesis [Recovered/Resolved]
  - Impaired healing [Recovered/Resolved]
  - Spider vein [Recovered/Resolved]
  - Vascular pain [Recovered/Resolved]
